FAERS Safety Report 5842465-4 (Version None)
Quarter: 2008Q3

REPORT INFORMATION
  Report Type: 
  Country: None (occurrence: None)
  Receive Date: 20080731
  Receipt Date: 20080620
  Transmission Date: 20090109
  Serious: No
  Sender: FDA-Public Use
  Company Number: US200806005093

PATIENT
  Age: 64 Year
  Sex: Female

DRUGS (3)
  1. BYETTA [Suspect]
     Indication: TYPE 2 DIABETES MELLITUS
     Dosage: 5 UG, 2/D, SUBCUTANEOUS
     Route: 058
     Dates: start: 20080616, end: 20080618
  2. INSULIN (INSULIN) [Concomitant]
  3. GLYBURIDE [Concomitant]

REACTIONS (4)
  - BLOOD GLUCOSE DECREASED [None]
  - BLOOD GLUCOSE FLUCTUATION [None]
  - HYPERHIDROSIS [None]
  - TREMOR [None]
